FAERS Safety Report 4646401-8 (Version None)
Quarter: 2005Q2

REPORT INFORMATION
  Report Type: 
  Country: None (occurrence: None)
  Receive Date: 20050427
  Receipt Date: 20040708
  Transmission Date: 20051028
  Serious: No
  Sender: FDA-Public Use
  Company Number: US-GLAXOSMITHKLINE-A0517774A

PATIENT
  Sex: Female

DRUGS (1)
  1. SEREVENT [Suspect]
     Indication: ILL-DEFINED DISORDER
     Route: 055

REACTIONS (2)
  - ORAL CANDIDIASIS [None]
  - PHARYNGOLARYNGEAL PAIN [None]
